FAERS Safety Report 6907194-4 (Version None)
Quarter: 2010Q3

REPORT INFORMATION
  Report Type: 
  Country: None (occurrence: None)
  Receive Date: 20100802
  Receipt Date: 20100719
  Transmission Date: 20110219
  Serious: Yes (Hospitalization)
  Sender: FDA-Public Use
  Company Number: 1000014257

PATIENT
  Age: 46 Year
  Sex: Male
  Weight: 66 kg

DRUGS (3)
  1. ESCITALOPRAM [Suspect]
     Indication: MAJOR DEPRESSION
     Dosage: 10 MG (10 MG,1 IN 1 D),ORAL
     Route: 048
     Dates: start: 20100220
  2. NORDAZ (TABLETS) [Concomitant]
  3. ZOLPIDEM [Concomitant]

REACTIONS (3)
  - BLOOD CREATININE INCREASED [None]
  - EPILEPSY [None]
  - LOSS OF CONSCIOUSNESS [None]
